FAERS Safety Report 4399246-0 (Version None)
Quarter: 2004Q2

REPORT INFORMATION
  Report Type: 
  Country: None (occurrence: None)
  Receive Date: 20040621
  Receipt Date: 20031219
  Transmission Date: 20050107
  Serious: Yes (Other)
  Sender: FDA-Public Use
  Company Number: USA-2003-0008914

PATIENT
  Age: 35 Year
  Sex: Male

DRUGS (6)
  1. OXYCONTIN [Suspect]
     Indication: PAIN
     Dosage: MG, SEE TEXT,
     Dates: start: 19990901, end: 20011101
  2. PERCOCET [Concomitant]
  3. METHADONE HCL [Concomitant]
  4. LORTAB [Concomitant]
  5. VIAGRA [Concomitant]
  6. OXYCODONE HCL [Concomitant]

REACTIONS (24)
  - ARTHRALGIA [None]
  - ARTHROPOD BITE [None]
  - BACK INJURY [None]
  - BACK PAIN [None]
  - CHEST PAIN [None]
  - CONFUSIONAL STATE [None]
  - DEPRESSION [None]
  - DRUG ABUSER [None]
  - DRUG DEPENDENCE [None]
  - DRUG TOLERANCE [None]
  - DRUG WITHDRAWAL SYNDROME [None]
  - ERECTILE DYSFUNCTION [None]
  - EXCORIATION [None]
  - HAND FRACTURE [None]
  - INSOMNIA [None]
  - IRRITABILITY [None]
  - MEDICATION ERROR [None]
  - NAUSEA [None]
  - NERVOUSNESS [None]
  - PAIN [None]
  - SEXUAL DYSFUNCTION [None]
  - STOMACH DISCOMFORT [None]
  - TREMOR [None]
  - WEIGHT DECREASED [None]
